FAERS Safety Report 9753276 (Version 1)
Quarter: 2013Q4

REPORT INFORMATION
  Report Type: Spontaneous
  Country: PL (occurrence: PL)
  Receive Date: 20131213
  Receipt Date: 20131213
  Transmission Date: 20140711
  Serious: Yes (Life-Threatening, Hospitalization)
  Sender: FDA-Public Use
  Company Number: PL-B.I. PHARMACEUTICALS,INC./RIDGEFIELD-2013-BI-41920PN

PATIENT
  Sex: Female

DRUGS (4)
  1. PRADAXA [Suspect]
     Indication: ATRIAL FIBRILLATION
     Dosage: 220 MG
     Route: 048
     Dates: start: 2012, end: 20130826
  2. TRITACE 10 MG/ RAMIPRIL [Concomitant]
     Dosage: 10 MG
  3. BISOCARD 5 MG/ BISOPROLOL [Concomitant]
     Dosage: 5 MG
  4. KALIPOZ / POTASSIUM CHLORIDE [Concomitant]

REACTIONS (2)
  - Normochromic normocytic anaemia [Recovered/Resolved]
  - Haemoglobin decreased [Recovered/Resolved]
